FAERS Safety Report 8789294 (Version 1)
Quarter: 2012Q4

REPORT INFORMATION
  Report Type: Spontaneous
  Country: US (occurrence: None)
  Receive Date: 20120910
  Receipt Date: 20120910
  Transmission Date: 20130627
  Serious: Yes (Other)
  Sender: FDA-Public Use
  Company Number: None

PATIENT
  Age: 32 Year
  Sex: Female
  Weight: 73.48 kg

DRUGS (1)
  1. CYMBALTA 30 MG LILLY [Suspect]
     Indication: POST-TRAUMATIC STRESS DISORDER
     Route: 048
     Dates: start: 20090101, end: 20120818

REACTIONS (12)
  - Pregnancy [None]
  - Exposure during pregnancy [None]
  - Dizziness [None]
  - Impaired driving ability [None]
  - Hearing impaired [None]
  - Abdominal pain upper [None]
  - Diarrhoea [None]
  - Drug withdrawal syndrome [None]
  - Hypoaesthesia oral [None]
  - Paraesthesia oral [None]
  - Hypoaesthesia [None]
  - Paraesthesia [None]
